FAERS Safety Report 6592939-6 (Version None)
Quarter: 2010Q1

REPORT INFORMATION
  Report Type: 
  Country: None (occurrence: None)
  Receive Date: 20100222
  Receipt Date: 20100212
  Transmission Date: 20100710
  Serious: Yes (Hospitalization, Other)
  Sender: FDA-Public Use
  Company Number: CA-ELI_LILLY_AND_COMPANY-CA201002003654

PATIENT
  Sex: Female

DRUGS (5)
  1. HUMULIN N [Suspect]
     Dosage: 36 U, EACH MORNING
     Dates: end: 20090101
  2. HUMULIN N [Suspect]
     Dosage: 34 U, EACH EVENING
     Dates: end: 20090101
  3. HUMULIN N [Suspect]
     Dosage: 12 U, EACH MORNING
  4. HUMULIN N [Suspect]
     Dosage: 12 U, EACH EVENING
  5. HUMULIN N [Suspect]
     Dosage: UNK, AS NEEDED

REACTIONS (3)
  - DRUG DOSE OMISSION [None]
  - KNEE ARTHROPLASTY [None]
  - RENAL IMPAIRMENT [None]
